FAERS Safety Report 9660561 (Version 1)
Quarter: 2013Q4

REPORT INFORMATION
  Report Type: Spontaneous
  Country: FR (occurrence: FR)
  Receive Date: 20131031
  Receipt Date: 20131031
  Transmission Date: 20140711
  Serious: Yes (Hospitalization)
  Sender: FDA-Public Use
  Company Number: FR-PFIZER INC-2013304060

PATIENT
  Age: 74 Year
  Sex: Male

DRUGS (7)
  1. EFFEXOR [Suspect]
     Indication: DEPRESSION
     Dosage: 75 MG, TWICE DAILY
     Route: 048
  2. TRAMADOL HCL [Interacting]
     Indication: PAIN
     Dosage: 200 MG, ONCE DAILY
     Route: 048
     Dates: start: 20131004, end: 20131007
  3. ZOPICLONE [Interacting]
     Dosage: 7.5 MG, ONCE DAILY
     Route: 048
  4. LEXOMIL [Interacting]
     Dosage: 12 MG, ONCE DAILY
     Route: 048
     Dates: end: 20131007
  5. DIFFU K [Concomitant]
     Dosage: UNK
  6. SPIRONOLACTONE [Concomitant]
     Dosage: UNK
  7. KARDEGIC [Concomitant]
     Dosage: UNK

REACTIONS (11)
  - Abnormal behaviour [Recovered/Resolved]
  - Disorientation [Recovered/Resolved]
  - Slow speech [Unknown]
  - Aggression [Recovered/Resolved]
  - Fall [Unknown]
  - Cerebellar syndrome [Unknown]
  - Drug interaction [Recovered/Resolved]
  - Somnolence [Unknown]
  - Pupillary reflex impaired [Unknown]
  - Oxygen saturation decreased [Unknown]
  - Cerebral atrophy [Unknown]
